FAERS Safety Report 7262897-X (Version None)
Quarter: 2011Q1

REPORT INFORMATION
  Report Type: 
  Country: None (occurrence: None)
  Receive Date: 20110130
  Receipt Date: 20101015
  Transmission Date: 20110831
  Serious: No
  Sender: FDA-Public Use
  Company Number: US-ABBOTT-10P-163-0678644-00

PATIENT
  Age: 66 Year
  Sex: Female

DRUGS (4)
  1. PREDNISONE [Concomitant]
     Indication: CROHN'S DISEASE
  2. HUMIRA [Suspect]
     Indication: CROHN'S DISEASE
     Dates: start: 20100601
  3. MULTIVITAMIN [Concomitant]
     Indication: SUPPLEMENTATION THERAPY
  4. CALCIUM [Concomitant]
     Indication: SUPPLEMENTATION THERAPY

REACTIONS (4)
  - DIARRHOEA [None]
  - BURNING SENSATION [None]
  - NIGHT SWEATS [None]
  - CROHN'S DISEASE [None]
